FAERS Safety Report 4538964-8 (Version None)
Quarter: 2004Q4

REPORT INFORMATION
  Report Type: 
  Country: None (occurrence: None)
  Receive Date: 20041222
  Receipt Date: 20041207
  Transmission Date: 20050328
  Serious: No
  Sender: FDA-Public Use
  Company Number: USA041183972

PATIENT
  Age: 52 Year
  Sex: Male
  Weight: 118 kg

DRUGS (1)
  1. FORTEO [Suspect]
     Indication: OSTEOPOROSIS

REACTIONS (4)
  - ARTHRITIS [None]
  - BONE DISORDER [None]
  - INFLAMMATION [None]
  - JOINT HYPEREXTENSION [None]
